FAERS Safety Report 18663668 (Version 1)
Quarter: 2020Q4

REPORT INFORMATION
  Report Type: Spontaneous
  Country: IT (occurrence: IT)
  Receive Date: 20201224
  Receipt Date: 20201224
  Transmission Date: 20210114
  Serious: Yes (Other)
  Sender: FDA-Public Use
  Company Number: IT-MYLANLABS-2020M1069786

PATIENT
  Age: 30 Year
  Sex: Female
  Weight: 102 kg

DRUGS (6)
  1. IMMUNOGLOBULIN                     /00025201/ [Suspect]
     Active Substance: HUMAN IMMUNOGLOBULIN G
     Indication: ANTIPHOSPHOLIPID SYNDROME
     Dosage: 400 MICROGRAM/KILOGRAM (FOR 5 DAYS MONTHLY)
     Route: 042
  2. RITUXIMAB. [Suspect]
     Active Substance: RITUXIMAB
     Indication: ANTIPHOSPHOLIPID SYNDROME
     Dosage: 375 MILLIGRAM/SQ. METER, QW (700 MG ONCE A WEEK)
     Route: 065
     Dates: start: 201810
  3. ACETYLSALICYLIC ACID [Suspect]
     Active Substance: ASPIRIN
     Indication: ANTIPHOSPHOLIPID SYNDROME
  4. ACETYLSALICYLIC ACID [Suspect]
     Active Substance: ASPIRIN
     Indication: GYNAECOLOGICAL DISORDER PROPHYLAXIS
     Dosage: 100 MILLIGRAM, QD
     Route: 065
  5. PREDNISONE. [Suspect]
     Active Substance: PREDNISONE
     Indication: ANTIPHOSPHOLIPID SYNDROME
     Dosage: 1 MILLIGRAM/KILOGRAM, QD
     Route: 065
  6. ENOXAPARIN [Suspect]
     Active Substance: ENOXAPARIN
     Indication: ANTIPHOSPHOLIPID SYNDROME
     Dosage: 8000 INTERNATIONAL UNIT, BID
     Route: 065

REACTIONS (6)
  - Foetal death [Unknown]
  - Pre-eclampsia [Unknown]
  - Foetal growth restriction [Unknown]
  - Maternal exposure during pregnancy [Unknown]
  - Off label use [Unknown]
  - Product use in unapproved indication [Unknown]

NARRATIVE: CASE EVENT DATE: 201805
